FAERS Safety Report 7220638-6 (Version None)
Quarter: 2011Q1

REPORT INFORMATION
  Report Type: 
  Country: None (occurrence: None)
  Receive Date: 20110111
  Receipt Date: 20110110
  Transmission Date: 20110831
  Serious: Yes (Hospitalization, Other)
  Sender: FDA-Public Use
  Company Number: DE-ABBOTT-10P-062-0691158-00

PATIENT
  Sex: Male
  Weight: 90 kg

DRUGS (5)
  1. HUMIRA [Suspect]
     Indication: PSORIATIC ARTHROPATHY
     Route: 058
     Dates: start: 20100602, end: 20100910
  2. HUMIRA [Suspect]
     Dates: start: 20101202
  3. MTX [Concomitant]
     Indication: PSORIATIC ARTHROPATHY
     Route: 058
     Dates: start: 20100428, end: 20100910
  4. MTX [Concomitant]
     Dates: start: 20101101
  5. PREDNISOLONE [Concomitant]
     Indication: PSORIATIC ARTHROPATHY
     Route: 048
     Dates: start: 20100401

REACTIONS (7)
  - INTESTINAL HAEMORRHAGE [None]
  - ILEUS [None]
  - ABSCESS [None]
  - APPENDICECTOMY [None]
  - ABDOMINAL ADHESIONS [None]
  - LYMPHADENITIS [None]
  - HYPOKALAEMIA [None]
